FAERS Safety Report 7760161-3 (Version None)
Quarter: 2011Q3

REPORT INFORMATION
  Report Type: 
  Country: None (occurrence: None)
  Receive Date: 20110919
  Receipt Date: 20110909
  Transmission Date: 20111222
  Serious: Yes (Other)
  Sender: FDA-Public Use
  Company Number: US-CELGENEUS-163-21880-11061517

PATIENT
  Sex: Female

DRUGS (3)
  1. ARANESP [Concomitant]
     Dosage: 250 MILLIGRAM
     Route: 058
     Dates: start: 20080101
  2. REVLIMID [Suspect]
     Indication: MULTIPLE MYELOMA
     Dosage: 15 MILLIGRAM
     Route: 048
     Dates: start: 20081101
  3. DECADRON [Concomitant]
     Dosage: 40 MILLIGRAM
     Route: 048
     Dates: start: 20080101

REACTIONS (1)
  - HAND FRACTURE [None]
